FAERS Safety Report 9051856 (Version 3)
Quarter: 2013Q2

REPORT INFORMATION
  Report Type: Spontaneous
  Country: ES (occurrence: ES)
  Receive Date: 20130207
  Receipt Date: 20130611
  Transmission Date: 20140414
  Serious: Yes (Hospitalization, Other)
  Sender: FDA-Public Use
  Company Number: ES-AMGEN-ESPSP2013006556

PATIENT
  Age: 71 Year
  Sex: Female
  Weight: 73 kg

DRUGS (4)
  1. PROLIA [Suspect]
     Indication: PRODUCT USED FOR UNKNOWN INDICATION
     Dosage: UNK UNK, Q6MO
     Route: 058
  2. PREDNISONE [Concomitant]
     Dosage: UNK
     Route: 048
     Dates: start: 20100414, end: 20110222
  3. METHOTREXATE [Concomitant]
     Dosage: 15 MG, UNK
     Route: 058
     Dates: start: 20120808
  4. LANSOPRAZOLE [Concomitant]
     Dosage: UNK
     Route: 048
     Dates: start: 20080102

REACTIONS (4)
  - Fall [Unknown]
  - Mobility decreased [Unknown]
  - Atypical femur fracture [Recovering/Resolving]
  - Pain [Unknown]
